FAERS Safety Report 18694387 (Version 1)
Quarter: 2020Q4

REPORT INFORMATION
  Report Type: Spontaneous
  Country: US (occurrence: US)
  Receive Date: 20201231
  Receipt Date: 20201231
  Transmission Date: 20210114
  Serious: Yes (Hospitalization)
  Sender: FDA-Public Use
  Company Number: None

PATIENT
  Sex: Female

DRUGS (14)
  1. RAMPRIL [Concomitant]
     Active Substance: RAMIPRIL
  2. BD PEN [Concomitant]
  3. DEXAMETHASON [Concomitant]
     Active Substance: DEXAMETHASONE
  4. LEVETIRACETA [Concomitant]
     Active Substance: LEVETIRACETAM
  5. NOVOLOG [Concomitant]
     Active Substance: INSULIN ASPART
  6. VIMPAT [Concomitant]
     Active Substance: LACOSAMIDE
  7. OMPRAZOLE [Concomitant]
     Active Substance: OMEPRAZOLE
  8. AMLODIPINE [Concomitant]
     Active Substance: AMLODIPINE BESYLATE
  9. GABAPENTIN. [Concomitant]
     Active Substance: GABAPENTIN
  10. NOVOFINE [Concomitant]
     Active Substance: INSULIN NOS
  11. PROCHLORPER [Concomitant]
  12. BURPROPIN HCL [Concomitant]
  13. ONE TOUCH [Concomitant]
     Active Substance: DEXTROSE
  14. TEMOZOLOMIDE. [Suspect]
     Active Substance: TEMOZOLOMIDE
     Indication: BRAIN NEOPLASM MALIGNANT
     Route: 048
     Dates: start: 20201202

REACTIONS (1)
  - Hospitalisation [None]
